FAERS Safety Report 14977233 (Version 1)
Quarter: 2018Q2

REPORT INFORMATION
  Report Type: Spontaneous
  Country: IT (occurrence: IT)
  Receive Date: 20180606
  Receipt Date: 20180606
  Transmission Date: 20180711
  Serious: Yes (Other)
  Sender: FDA-Public Use
  Company Number: IT-TEVA-2018-IT-899883

PATIENT
  Age: 61 Year
  Sex: Male

DRUGS (1)
  1. ACITRETIN UNK [Suspect]
     Active Substance: ACITRETIN
     Indication: PSORIASIS
     Dosage: 25 MILLIGRAM DAILY;
     Route: 065

REACTIONS (1)
  - Adenocarcinoma [Unknown]
